FAERS Safety Report 6225297-7 (Version None)
Quarter: 2009Q2

REPORT INFORMATION
  Report Type: 
  Country: None (occurrence: None)
  Receive Date: 20090612
  Receipt Date: 20090414
  Transmission Date: 20091009
  Serious: No
  Sender: FDA-Public Use
  Company Number: US-ABBOTT-09P-163-0568114-00

PATIENT
  Sex: Female
  Weight: 62.198 kg

DRUGS (12)
  1. HUMIRA [Suspect]
     Indication: CROHN'S DISEASE
     Route: 058
     Dates: start: 20090101
  2. HUMIRA [Suspect]
     Indication: SHORT-BOWEL SYNDROME
  3. HUMIRA [Suspect]
     Indication: DIARRHOEA
  4. LEXAPRO [Concomitant]
     Indication: DEPRESSION
  5. LYRICA [Concomitant]
     Indication: FIBROMYALGIA
  6. AMBIEN [Concomitant]
     Indication: INSOMNIA
  7. HIGH DOSE VITAMIN D [Concomitant]
     Indication: BONE DENSITY DECREASED
  8. VITAMIN D [Concomitant]
     Indication: BONE DENSITY DECREASED
  9. CALCIUM [Concomitant]
     Indication: BONE DENSITY DECREASED
  10. ZINC [Concomitant]
     Indication: BONE DENSITY DECREASED
  11. MAGNESIUM SULFATE [Concomitant]
     Indication: BONE DENSITY DECREASED
  12. OPTORITE [Concomitant]
     Indication: DIARRHOEA
     Route: 058
     Dates: start: 20090301

REACTIONS (8)
  - ARTHRALGIA [None]
  - HEADACHE [None]
  - INFLUENZA LIKE ILLNESS [None]
  - INSOMNIA [None]
  - JOINT RANGE OF MOTION DECREASED [None]
  - JOINT SWELLING [None]
  - NAUSEA [None]
  - VISION BLURRED [None]
